FAERS Safety Report 7081483-8 (Version None)
Quarter: 2010Q4

REPORT INFORMATION
  Report Type: 
  Country: None (occurrence: None)
  Receive Date: 20101102
  Receipt Date: 20101102
  Transmission Date: 20110411
  Serious: No
  Sender: FDA-Public Use
  Company Number: None

PATIENT
  Age: 59 Year
  Sex: Male
  Weight: 91 kg

DRUGS (3)
  1. NAPROXEN [Suspect]
     Indication: PAIN
     Dosage: 500 MG BID PO
     Route: 048
     Dates: start: 20100810, end: 20100913
  2. NAPROXEN [Suspect]
     Indication: SWELLING
     Dosage: 500 MG BID PO
     Route: 048
     Dates: start: 20100810, end: 20100913
  3. DEXAMETHASONE [Suspect]
     Indication: MYELITIS TRANSVERSE
     Dosage: MG EVERYDAY PO
     Route: 048
     Dates: start: 20100903, end: 20100913

REACTIONS (3)
  - GASTRIC HAEMORRHAGE [None]
  - GASTRIC ULCER PERFORATION [None]
  - HAEMOGLOBIN DECREASED [None]
